FAERS Safety Report 7493810-8 (Version None)
Quarter: 2011Q2

REPORT INFORMATION
  Report Type: 
  Country: None (occurrence: None)
  Receive Date: 20110520
  Receipt Date: 20110516
  Transmission Date: 20111010
  Serious: Yes (Hospitalization)
  Sender: FDA-Public Use
  Company Number: NO-PFIZER INC-2011095464

PATIENT
  Age: 63 Year
  Sex: Male

DRUGS (7)
  1. SUTENT [Suspect]
     Indication: ADRENOCORTICAL CARCINOMA
     Dosage: UNK
     Dates: start: 20110401, end: 20110502
  2. CIPROFLOXACIN [Concomitant]
  3. LAXOBERAL [Concomitant]
  4. SAROTEX [Concomitant]
  5. PENICILLIN V POTASSIUM [Concomitant]
  6. LYRICA [Concomitant]
  7. MYCOSTATIN [Concomitant]

REACTIONS (3)
  - ELECTROCARDIOGRAM QT PROLONGED [None]
  - CARDIAC ARREST [None]
  - VENTRICULAR FIBRILLATION [None]
